FAERS Safety Report 11182145 (Version 1)
Quarter: 2015Q2

REPORT INFORMATION
  Report Type: Spontaneous
  Country: US (occurrence: US)
  Receive Date: 20150611
  Receipt Date: 20150611
  Transmission Date: 20150821
  Serious: No
  Sender: FDA-Public Use
  Company Number: US-ASTELLAS-2015US014643

PATIENT
  Age: 77 Year
  Sex: Male

DRUGS (2)
  1. XTANDI [Suspect]
     Active Substance: ENZALUTAMIDE
     Indication: PROSTATE CANCER
     Dosage: 1 DF (CAPSULE), ONCE DAILY
     Route: 065
     Dates: start: 20150315
  2. XTANDI [Suspect]
     Active Substance: ENZALUTAMIDE
     Dosage: 4 DF(CAPSULE), ONCE DAILY
     Route: 065
     Dates: start: 20150428

REACTIONS (7)
  - Sleep disorder [Unknown]
  - Asthenia [Unknown]
  - Restlessness [Unknown]
  - Cough [Unknown]
  - Underdose [Unknown]
  - Unevaluable event [Unknown]
  - Dyspnoea [Unknown]

NARRATIVE: CASE EVENT DATE: 20150315
